FAERS Safety Report 4610149-6 (Version None)
Quarter: 2005Q1

REPORT INFORMATION
  Report Type: 
  Country: None (occurrence: None)
  Receive Date: 20050314
  Receipt Date: 20050301
  Transmission Date: 20050727
  Serious: Yes (Other)
  Sender: FDA-Public Use
  Company Number: 2005042222

PATIENT
  Sex: Female
  Weight: 76.6579 kg

DRUGS (1)
  1. PREDNISONE TAB [Suspect]
     Indication: ILL-DEFINED DISORDER

REACTIONS (1)
  - WEIGHT INCREASED [None]
